FAERS Safety Report 16525875 (Version 1)
Quarter: 2019Q3

REPORT INFORMATION
  Report Type: Spontaneous
  Country: GR (occurrence: GR)
  Receive Date: 20190703
  Receipt Date: 20190703
  Transmission Date: 20191004
  Serious: Yes (Other)
  Sender: FDA-Public Use
  Company Number: GR-AMGEN-GRCSP2019103236

PATIENT
  Age: 84 Year
  Sex: Female

DRUGS (10)
  1. PROLIA [Suspect]
     Active Substance: DENOSUMAB
     Indication: OSTEOPOROSIS
     Dosage: UNK
     Route: 065
     Dates: start: 2014
  2. ATROST [Concomitant]
     Active Substance: ATORVASTATIN CALCIUM
  3. ZEMPLAR [Concomitant]
     Active Substance: PARICALCITOL
  4. SALOSPIR [Concomitant]
     Active Substance: ASPIRIN
  5. SEROPRAM [Concomitant]
  6. T4 [Concomitant]
     Active Substance: LEVOTHYROXINE
  7. TRAJENTA [Concomitant]
     Active Substance: LINAGLIPTIN
     Indication: DIABETES MELLITUS
  8. SOLURIC [Concomitant]
     Active Substance: ALLOPURINOL
     Indication: BLOOD URIC ACID INCREASED
  9. EBIXA [Concomitant]
     Active Substance: MEMANTINE HYDROCHLORIDE
     Indication: VASCULAR DEMENTIA
  10. DULCOSOFT [Concomitant]

REACTIONS (3)
  - Noninfective gingivitis [Unknown]
  - Renal disorder [Recovered/Resolved]
  - Spinal fracture [Unknown]

NARRATIVE: CASE EVENT DATE: 2017
